FAERS Safety Report 4553940-7 (Version None)
Quarter: 2005Q1

REPORT INFORMATION
  Report Type: 
  Country: None (occurrence: None)
  Receive Date: 20050118
  Receipt Date: 20050104
  Transmission Date: 20050727
  Serious: Yes (Other)
  Sender: FDA-Public Use
  Company Number: PHBS2005KR00537

PATIENT
  Age: 48 Year
  Sex: Male

DRUGS (1)
  1. GLEEVEC [Suspect]
     Indication: LEUKAEMIA
     Route: 048

REACTIONS (1)
  - HAEMOTHORAX [None]
